FAERS Safety Report 9594708 (Version 1)
Quarter: 2013Q3

REPORT INFORMATION
  Report Type: Spontaneous
  Country: US (occurrence: None)
  Receive Date: 20130927
  Receipt Date: 20130927
  Transmission Date: 20140515
  Serious: Yes (Hospitalization)
  Sender: FDA-Public Use
  Company Number: CABO-13003111

PATIENT
  Age: 70 Year
  Sex: Male
  Weight: 111.6 kg

DRUGS (1)
  1. COMETRIQ [Suspect]
     Indication: THYROID CANCER
     Route: 048
     Dates: start: 20130724, end: 20130731

REACTIONS (4)
  - Dehydration [None]
  - Diarrhoea [None]
  - Hypophagia [None]
  - Fluid intake reduced [None]
